FAERS Safety Report 16790268 (Version 1)
Quarter: 2019Q4

REPORT INFORMATION
  Report Type: Spontaneous
  Country: US (occurrence: US)
  Receive Date: 20190909
  Receipt Date: 20190909
  Transmission Date: 20200122
  Serious: Yes (Hospitalization)
  Sender: FDA-Public Use
  Company Number: None

PATIENT
  Age: 35 Year
  Sex: Male
  Weight: 63 kg

DRUGS (3)
  1. ACTEMRA [Suspect]
     Active Substance: TOCILIZUMAB
     Indication: IMMUNE TOLERANCE INDUCTION
     Dosage: ?          OTHER FREQUENCY:ONE DOSE MONTHLY;?
     Route: 041
     Dates: start: 20190814, end: 20190814
  2. ACTEMRA [Suspect]
     Active Substance: TOCILIZUMAB
     Indication: IMMUNE TOLERANCE INDUCTION
     Dosage: ?          OTHER FREQUENCY:ONE DOSE PER MONTH;?
     Route: 041
     Dates: start: 20190814, end: 20190814
  3. PANZYGA 10% 70GM/700ML [Concomitant]
     Dates: start: 20190814, end: 20190814

REACTIONS (1)
  - Colitis [None]

NARRATIVE: CASE EVENT DATE: 20190904
